FAERS Safety Report 11535163 (Version 1)
Quarter: 2015Q3

REPORT INFORMATION
  Report Type: Spontaneous
  Country: US (occurrence: None)
  Receive Date: 20150921
  Receipt Date: 20150921
  Transmission Date: 20151125
  Serious: No
  Sender: FDA-Public Use
  Company Number: None

PATIENT
  Age: 37 Year
  Sex: Female

DRUGS (1)
  1. REMICADE [Suspect]
     Active Substance: INFLIXIMAB
     Indication: CROHN^S DISEASE
     Dosage: 311MG EVERY 8 WEEKS IV
     Route: 042
     Dates: start: 20150911, end: 20150918

REACTIONS (3)
  - Rash [None]
  - Pruritus [None]
  - Liver function test abnormal [None]

NARRATIVE: CASE EVENT DATE: 20150918
